FAERS Safety Report 24822339 (Version 2)
Quarter: 2025Q1

REPORT INFORMATION
  Report Type: Report from Study
  Country: US (occurrence: US)
  Receive Date: 20250108
  Receipt Date: 20250208
  Transmission Date: 20250409
  Serious: Yes (Death, Hospitalization)
  Sender: ABBVIE
  Company Number: US-ABBVIE-6076164

PATIENT
  Age: 87 Year
  Sex: Male

DRUGS (1)
  1. SKYRIZI [Suspect]
     Active Substance: RISANKIZUMAB-RZAA
     Indication: Psoriasis
     Route: 058
     Dates: start: 20241002

REACTIONS (3)
  - Lymphoedema [Fatal]
  - Pneumonia [Fatal]
  - Unevaluable event [Unknown]

NARRATIVE: CASE EVENT DATE: 20241201
